FAERS Safety Report 19146805 (Version 4)
Quarter: 2022Q1

REPORT INFORMATION
  Report Type: Spontaneous
  Country: US (occurrence: US)
  Receive Date: 20210416
  Receipt Date: 20220215
  Transmission Date: 20220423
  Serious: Yes (Other)
  Sender: FDA-Public Use
  Company Number: US-PFIZER INC-2021320922

PATIENT
  Age: 65 Year
  Sex: Female

DRUGS (1)
  1. XELJANZ XR [Suspect]
     Active Substance: TOFACITINIB CITRATE
     Dosage: 11 MG, 1X/DAY
     Route: 048

REACTIONS (8)
  - Meningitis Escherichia [Unknown]
  - Product prescribing error [Unknown]
  - Fall [Unknown]
  - Pain [Unknown]
  - Headache [Unknown]
  - Nasal congestion [Unknown]
  - Nasopharyngitis [Unknown]
  - Product dose omission issue [Unknown]
